FAERS Safety Report 5460397-0 (Version None)
Quarter: 2007Q3

REPORT INFORMATION
  Report Type: 
  Country: None (occurrence: None)
  Receive Date: 20070919
  Receipt Date: 20070702
  Transmission Date: 20080115
  Serious: No
  Sender: FDA-Public Use
  Company Number: US-ASTRAZENECA-2007UW15785

PATIENT
  Age: 14556 Day
  Sex: Male
  Weight: 108.2 kg

DRUGS (3)
  1. SEROQUEL [Suspect]
     Indication: DEPRESSION
     Dosage: 25-75 MG
     Route: 048
     Dates: start: 20050501, end: 20070201
  2. LITHIUM [Concomitant]
     Dates: start: 20050101
  3. LEXAPRO [Concomitant]
     Dates: start: 20050101

REACTIONS (2)
  - APPENDICITIS [None]
  - TYPE 2 DIABETES MELLITUS [None]
